FAERS Safety Report 5703424-5 (Version None)
Quarter: 2008Q2

REPORT INFORMATION
  Report Type: 
  Country: None (occurrence: None)
  Receive Date: 20080411
  Receipt Date: 20080331
  Transmission Date: 20081010
  Serious: Yes (Disabling, Other)
  Sender: FDA-Public Use
  Company Number: US-PFIZER INC-2008029021

PATIENT
  Sex: Female
  Weight: 49 kg

DRUGS (1)
  1. ESTRING [Suspect]
     Indication: VULVOVAGINAL DRYNESS
     Route: 067
     Dates: start: 20080305, end: 20080314

REACTIONS (8)
  - BALANCE DISORDER [None]
  - DIZZINESS [None]
  - HEADACHE [None]
  - IMPAIRED DRIVING ABILITY [None]
  - INNER EAR DISORDER [None]
  - NAUSEA [None]
  - VERTIGO [None]
  - VOMITING [None]
